FAERS Safety Report 9451511 (Version 2)
Quarter: 2013Q4

REPORT INFORMATION
  Report Type: Spontaneous
  Country: US (occurrence: US)
  Receive Date: 20130811
  Receipt Date: 20131004
  Transmission Date: 20140711
  Serious: Yes (Hospitalization, Other)
  Sender: FDA-Public Use
  Company Number: US-TEVA-424389USA

PATIENT
  Age: 69 Year
  Sex: Male

DRUGS (20)
  1. METHOTREXATE [Suspect]
  2. ACTHAR [Concomitant]
  3. PREDNISONE [Concomitant]
     Dosage: 5 MILLIGRAM DAILY;
     Route: 048
  4. ACETYLSALICYLIC ACID [Concomitant]
     Dosage: 81 MILLIGRAM DAILY;
     Route: 048
  5. AVODART [Concomitant]
     Dosage: .5 MILLIGRAM DAILY;
     Route: 048
  6. CALCIUM [Concomitant]
  7. COLESTID [Concomitant]
     Dosage: 2 GRAM DAILY;
     Route: 048
  8. DETROL LA [Concomitant]
     Dosage: 4 MILLIGRAM DAILY;
     Route: 048
  9. FOLIC ACID [Concomitant]
     Dosage: 800 MICROGRAM DAILY;
     Route: 048
  10. LISINOPRIL [Concomitant]
     Dosage: 5 MILLIGRAM DAILY;
     Route: 048
  11. GLUCOPHAGE [Concomitant]
     Dosage: 500 MILLIGRAM DAILY;
     Route: 048
  12. MULTIVITAMIN [Concomitant]
     Route: 048
  13. MOMETASONE FUROATE [Concomitant]
  14. NIACIN [Concomitant]
     Dosage: 1 QHS
     Route: 048
  15. METOPROLOL SUCCINATE LA [Concomitant]
     Dosage: 25 MILLIGRAM DAILY;
     Route: 048
  16. VITAMIN D [Concomitant]
     Dosage: 50,000 UNITS
     Route: 048
  17. NITROSTAT [Concomitant]
     Dosage: SL Q5M PRN
  18. BACTROBAN [Concomitant]
     Dosage: 2% (22 GM) 1 APPLIC DAILY
     Route: 061
  19. DOXYCYCLINE HYCLATE [Concomitant]
     Dosage: 100 MG PO BID X 14 DAY
     Route: 048
  20. PERCOCET [Concomitant]
     Dosage: 1 TAB PO Q 4-6 P
     Route: 048

REACTIONS (4)
  - Staphylococcal abscess [Recovered/Resolved]
  - Cellulitis staphylococcal [Recovered/Resolved]
  - Wound complication [Recovered/Resolved]
  - Subcutaneous abscess [Recovered/Resolved]
